FAERS Safety Report 17537944 (Version 1)
Quarter: 2020Q1

REPORT INFORMATION
  Report Type: Spontaneous
  Country: DE (occurrence: DE)
  Receive Date: 20200313
  Receipt Date: 20200313
  Transmission Date: 20200409
  Serious: Yes (Other)
  Sender: FDA-Public Use
  Company Number: DE-PFIZER INC-2020106069

PATIENT

DRUGS (1)
  1. CYTOTEC [Suspect]
     Active Substance: MISOPROSTOL
     Indication: LABOUR INDUCTION
     Dosage: NOT EXACTLY KNOWN; HALF TO WHOLE TABLET EVERY 4 HOURS
     Route: 064
     Dates: start: 20190520, end: 20190522

REACTIONS (4)
  - Cyanosis neonatal [Recovered/Resolved]
  - Foetal exposure during delivery [Recovered/Resolved]
  - Foetal heart rate decreased [Recovered/Resolved]
  - Foetal distress syndrome [Recovered/Resolved]

NARRATIVE: CASE EVENT DATE: 201905
